FAERS Safety Report 7490408-2 (Version None)
Quarter: 2011Q2

REPORT INFORMATION
  Report Type: 
  Country: None (occurrence: None)
  Receive Date: 20110519
  Receipt Date: 20110504
  Transmission Date: 20111010
  Serious: Yes (Hospitalization)
  Sender: FDA-Public Use
  Company Number: GB-JNJFOC-20101102498

PATIENT
  Age: 30 Year
  Sex: Male

DRUGS (7)
  1. DIAZEPAM [Suspect]
     Indication: ILL-DEFINED DISORDER
     Route: 065
  2. PAROXETINE HCL [Suspect]
     Indication: ILL-DEFINED DISORDER
     Route: 065
  3. METHYLPHENIDATE HCL [Suspect]
     Indication: PRODUCT USED FOR UNKNOWN INDICATION
     Route: 048
  4. VENLAFAXINE [Suspect]
     Indication: ILL-DEFINED DISORDER
     Route: 065
  5. ETHANOL [Suspect]
     Indication: ILL-DEFINED DISORDER
     Route: 065
  6. ZOPICLONE [Suspect]
     Indication: ILL-DEFINED DISORDER
     Route: 065
  7. IBUPROFEN [Suspect]
     Indication: ILL-DEFINED DISORDER
     Route: 065

REACTIONS (1)
  - INTENTIONAL OVERDOSE [None]
